FAERS Safety Report 18846540 (Version 1)
Quarter: 2021Q1

REPORT INFORMATION
  Report Type: Spontaneous
  Country: US (occurrence: US)
  Receive Date: 20210204
  Receipt Date: 20210204
  Transmission Date: 20210419
  Serious: Yes (Hospitalization)
  Sender: FDA-Public Use
  Company Number: US-ROCHE-2724579

PATIENT
  Age: 83 Year
  Sex: Female

DRUGS (2)
  1. ACTEMRA [Suspect]
     Active Substance: TOCILIZUMAB
     Indication: RHEUMATOID ARTHRITIS
     Dosage: FROM NOV 2020 TO CURRENT?ACTPEN 162MG/0.9ML
     Route: 058
     Dates: start: 20201106
  2. ACTEMRA [Suspect]
     Active Substance: TOCILIZUMAB

REACTIONS (2)
  - Transient ischaemic attack [Unknown]
  - Hypertension [Unknown]

NARRATIVE: CASE EVENT DATE: 20201212
